FAERS Safety Report 4688301-3 (Version None)
Quarter: 2005Q2

REPORT INFORMATION
  Report Type: 
  Country: None (occurrence: None)
  Receive Date: 20050610
  Receipt Date: 20050310
  Transmission Date: 20051028
  Serious: Yes (Death, Other)
  Sender: FDA-Public Use
  Company Number: US-MERCK-0503USA02003

PATIENT
  Age: 55 Year
  Sex: Male
  Weight: 95 kg

DRUGS (13)
  1. VIOXX [Suspect]
     Indication: RHEUMATOID ARTHRITIS
     Route: 048
     Dates: start: 20010101, end: 20040529
  2. VIOXX [Suspect]
     Route: 048
     Dates: start: 20010601, end: 20040529
  3. NORVASC [Concomitant]
     Indication: CARDIAC DISORDER
     Route: 048
     Dates: end: 20040529
  4. NORVASC [Concomitant]
     Indication: HYPERTENSION
     Route: 048
     Dates: end: 20040529
  5. LODINE [Concomitant]
     Indication: PAIN
     Route: 048
  6. VICOPROFEN [Concomitant]
     Indication: ARTHRALGIA
     Route: 048
  7. AMBIEN [Concomitant]
     Indication: INSOMNIA
     Route: 065
  8. PREDNISONE [Concomitant]
     Indication: RHEUMATOID ARTHRITIS
     Route: 065
  9. MYLANTA + MYLANTA DS [Concomitant]
     Indication: GASTRIC DISORDER
     Route: 065
  10. DARVON [Concomitant]
     Indication: PAIN
     Route: 065
  11. LIPITOR [Concomitant]
     Indication: BLOOD CHOLESTEROL INCREASED
     Route: 065
     Dates: start: 20031001, end: 20040529
  12. SULFASALAZINE [Concomitant]
     Route: 065
  13. ACIPHEX [Concomitant]
     Indication: GASTRIC DISORDER
     Route: 065

REACTIONS (11)
  - ARTERIOSCLEROSIS [None]
  - ATRIAL FIBRILLATION [None]
  - CARDIAC ARREST [None]
  - EMOTIONAL DISTRESS [None]
  - GASTRIC DISORDER [None]
  - HYPERTENSIVE CARDIOMYOPATHY [None]
  - HYPERTENSIVE HEART DISEASE [None]
  - MUSCULOSKELETAL STIFFNESS [None]
  - MYOCARDIAL INFARCTION [None]
  - NASOPHARYNGITIS [None]
  - PAIN [None]
